FAERS Safety Report 5081973-3 (Version None)
Quarter: 2006Q3

REPORT INFORMATION
  Report Type: 
  Country: None (occurrence: None)
  Receive Date: 20060811
  Receipt Date: 20060731
  Transmission Date: 20061208
  Serious: Yes (Death)
  Sender: FDA-Public Use
  Company Number: HQWYE604101AUG06

PATIENT
  Sex: Female

DRUGS (2)
  1. ETHINYL ESTRADIOL AND LEVONORGESTREL [Suspect]
  2. MICROGYNON (ETHINYLESTRADIOL/LEVONORGESTREL,) [Suspect]
     Dosage: 1 TABLET 1X PER 1 DAY ORAL
     Route: 048

REACTIONS (1)
  - ACCIDENTAL DEATH [None]
